FAERS Safety Report 6235767-3 (Version None)
Quarter: 2009Q2

REPORT INFORMATION
  Report Type: 
  Country: None (occurrence: None)
  Receive Date: 20090617
  Receipt Date: 20090617
  Transmission Date: 20091009
  Serious: Yes (Other)
  Sender: FDA-Public Use
  Company Number: None

PATIENT
  Age: 54 Year
  Sex: Female
  Weight: 72.5755 kg

DRUGS (1)
  1. ZICAM GEL SWABS ZICAM [Suspect]
     Indication: NASOPHARYNGITIS
     Dosage: ONE TUBE EVERY 4 HRS NASAL
     Route: 045
     Dates: start: 20090519, end: 20090527

REACTIONS (2)
  - ANOSMIA [None]
  - DYSGEUSIA [None]
